FAERS Safety Report 7092762-2 (Version None)
Quarter: 2010Q4

REPORT INFORMATION
  Report Type: 
  Country: None (occurrence: None)
  Receive Date: 20101110
  Receipt Date: 20101029
  Transmission Date: 20110411
  Serious: Yes (Other)
  Sender: FDA-Public Use
  Company Number: US-ELI_LILLY_AND_COMPANY-US201011000201

PATIENT
  Age: 73 Year
  Sex: Female

DRUGS (6)
  1. FORTEO [Suspect]
     Indication: OSTEOPOROSIS
     Dosage: 20 UG, DAILY (1/D)
  2. NIFEDIPINE [Concomitant]
     Indication: BLOOD PRESSURE
  3. CITALOPRAM HYDROBROMIDE [Concomitant]
  4. VITAMIN D [Concomitant]
  5. MULTI-VITAMIN [Concomitant]
  6. CALCIUM [Concomitant]

REACTIONS (2)
  - EXOSTOSIS [None]
  - OSTEONECROSIS [None]
